FAERS Safety Report 4611204-7 (Version None)
Quarter: 2005Q1

REPORT INFORMATION
  Report Type: 
  Country: None (occurrence: None)
  Receive Date: 20050317
  Receipt Date: 20050131
  Transmission Date: 20050727
  Serious: Yes (Other)
  Sender: FDA-Public Use
  Company Number: US-MERCK-0502USA00132

PATIENT
  Age: 61 Year
  Sex: Female
  Weight: 74 kg

DRUGS (5)
  1. VIOXX [Suspect]
     Indication: OSTEOARTHRITIS
     Route: 048
     Dates: start: 19990601
  2. VIOXX [Suspect]
     Route: 048
  3. VIOXX [Suspect]
     Route: 048
     Dates: end: 20040930
  4. PREMARIN [Concomitant]
     Route: 065
     Dates: start: 19730101
  5. PRAVACHOL [Concomitant]
     Route: 065
     Dates: start: 19990308

REACTIONS (5)
  - ADVERSE EVENT [None]
  - BACK PAIN [None]
  - BURSITIS [None]
  - CORONARY ARTERY DISEASE [None]
  - ROTATOR CUFF SYNDROME [None]
